FAERS Safety Report 11120252 (Version 1)
Quarter: 2015Q2

REPORT INFORMATION
  Report Type: Spontaneous
  Country: AU (occurrence: AU)
  Receive Date: 20150518
  Receipt Date: 20150518
  Transmission Date: 20150821
  Serious: Yes (Hospitalization)
  Sender: FDA-Public Use
  Company Number: AU-MYLANLABS-2015M1016074

PATIENT

DRUGS (4)
  1. PARACETAMOL [Concomitant]
     Active Substance: ACETAMINOPHEN
     Indication: RENAL COLIC
     Dosage: 1GM
     Route: 065
  2. RIZATRIPTAN [Suspect]
     Active Substance: RIZATRIPTAN
     Indication: THUNDERCLAP HEADACHE
     Dosage: 10MG THREE WAFERS IN 24HOURS
     Route: 065
  3. INDOMETACIN [Suspect]
     Active Substance: INDOMETHACIN
     Indication: RENAL COLIC
     Dosage: 100MG
     Route: 065
  4. OXYCODONE [Concomitant]
     Active Substance: OXYCODONE
     Indication: RENAL COLIC
     Dosage: 5MG
     Route: 065

REACTIONS (2)
  - Reversible cerebral vasoconstriction syndrome [Recovered/Resolved]
  - Subarachnoid haemorrhage [Recovered/Resolved]
